FAERS Safety Report 6657749-X (Version None)
Quarter: 2010Q1

REPORT INFORMATION
  Report Type: 
  Country: None (occurrence: None)
  Receive Date: 20100330
  Receipt Date: 20090707
  Transmission Date: 20100710
  Serious: Yes (Death)
  Sender: FDA-Public Use
  Company Number: US-TYCO HEALTHCARE/MALLINCKRODT-T200901342

PATIENT
  Sex: Male

DRUGS (3)
  1. MORPHINE [Suspect]
  2. METHADOSE [Suspect]
  3. OXYCODONE [Suspect]

REACTIONS (1)
  - MULTIPLE DRUG OVERDOSE ACCIDENTAL [None]
